FAERS Safety Report 6500906-3 (Version None)
Quarter: 2009Q4

REPORT INFORMATION
  Report Type: 
  Country: None (occurrence: None)
  Receive Date: 20091216
  Receipt Date: 20090414
  Transmission Date: 20100525
  Serious: No
  Sender: FDA-Public Use
  Company Number: A0778697A

PATIENT
  Age: 25 Year
  Sex: Male

DRUGS (2)
  1. COMMIT [Suspect]
     Dates: start: 20090411, end: 20090411
  2. NICODERM CQ [Suspect]

REACTIONS (4)
  - APPLICATION SITE PAIN [None]
  - NAUSEA [None]
  - THROAT IRRITATION [None]
  - VOMITING [None]
